FAERS Safety Report 13946984 (Version 1)
Quarter: 2017Q3

REPORT INFORMATION
  Report Type: Spontaneous
  Country: IT (occurrence: IT)
  Receive Date: 20170907
  Receipt Date: 20170907
  Transmission Date: 20171128
  Serious: Yes (Hospitalization, Other)
  Sender: FDA-Public Use
  Company Number: IT-GLAXOSMITHKLINE-IT2017GSK137323

PATIENT
  Age: 44 Year
  Sex: Female

DRUGS (2)
  1. WELLBUTRIN [Suspect]
     Active Substance: BUPROPION HYDROCHLORIDE
     Indication: PRODUCT USED FOR UNKNOWN INDICATION
     Dosage: 30 DF, SINGLE, UNIT
     Route: 048
     Dates: start: 20170530, end: 20170530
  2. PRETERAX [Suspect]
     Active Substance: INDAPAMIDE\PERINDOPRIL
     Indication: PRODUCT USED FOR UNKNOWN INDICATION
     Dosage: 14 DF, SINGLE, UNIT
     Route: 048
     Dates: start: 20170530, end: 20170530

REACTIONS (4)
  - Epilepsy [Unknown]
  - Nausea [Unknown]
  - Somnolence [Unknown]
  - Drug abuse [Unknown]

NARRATIVE: CASE EVENT DATE: 20170530
